FAERS Safety Report 26184901 (Version 1)
Quarter: 2025Q4

REPORT INFORMATION
  Report Type: Spontaneous
  Country: CA (occurrence: CA)
  Receive Date: 20251222
  Receipt Date: 20251222
  Transmission Date: 20260117
  Serious: Yes (Death, Hospitalization, Other)
  Sender: AUROBINDO
  Company Number: CA-AUROBINDO-AUR-APL-2025-065506

PATIENT
  Age: 72 Year
  Sex: Female

DRUGS (7)
  1. MOXIFLOXACIN [Suspect]
     Active Substance: MOXIFLOXACIN
     Indication: Post procedural infection
     Dosage: UNK
     Route: 065
  2. MOXIFLOXACIN [Suspect]
     Active Substance: MOXIFLOXACIN
     Indication: Arthritis infective
     Dosage: 400 MILLIGRAM, ONCE A DAY
     Route: 065
  3. OCTREOTIDE ACETATE [Suspect]
     Active Substance: OCTREOTIDE ACETATE
     Indication: Carcinoid tumour
     Dosage: 30 MILLIGRAM, 1EVERY 1 MONTHS
  4. AMOXICILLIN\CLAVULANIC ACID [Concomitant]
     Active Substance: AMOXICILLIN\CLAVULANIC ACID
     Indication: Post procedural infection
     Dosage: UNK
     Route: 065
  5. AMOXICILLIN\CLAVULANIC ACID [Concomitant]
     Active Substance: AMOXICILLIN\CLAVULANIC ACID
     Indication: Arthritis infective
     Dosage: UNK, ONCE A DAY
     Route: 065
  6. AMOXICILLIN\CLAVULANIC ACID [Concomitant]
     Active Substance: AMOXICILLIN\CLAVULANIC ACID
     Dosage: UNK, TWO TIMES A DAY
     Route: 065
  7. CODEINE [Concomitant]
     Active Substance: CODEINE
     Indication: Product used for unknown indication
     Dosage: UNK
     Route: 065

REACTIONS (33)
  - Abdominal pain [Fatal]
  - Abnormal faeces [Fatal]
  - Anxiety [Fatal]
  - Blood glucose abnormal [Fatal]
  - Carcinoid tumour [Fatal]
  - Cataract [Fatal]
  - Chest pain [Fatal]
  - Cholelithiasis [Fatal]
  - Cystitis [Fatal]
  - Death [Fatal]
  - Depressed mood [Fatal]
  - Diarrhoea [Fatal]
  - Flushing [Fatal]
  - Glaucoma [Fatal]
  - Hypotension [Fatal]
  - Incision site haematoma [Fatal]
  - Infection [Fatal]
  - Infrequent bowel movements [Fatal]
  - Lung neoplasm [Fatal]
  - Malaise [Fatal]
  - Malignant neoplasm progression [Fatal]
  - Metastases to neck [Fatal]
  - Metastases to thyroid [Fatal]
  - Nausea [Fatal]
  - Neoplasm malignant [Fatal]
  - Parotitis [Fatal]
  - Scar [Fatal]
  - Thrombosis [Fatal]
  - Tooth abscess [Fatal]
  - Tumour rupture [Fatal]
  - Urine abnormality [Fatal]
  - Drug ineffective [Fatal]
  - Wrong technique in product usage process [Fatal]
